FAERS Safety Report 5026972-2 (Version None)
Quarter: 2006Q2

REPORT INFORMATION
  Report Type: 
  Country: None (occurrence: None)
  Receive Date: 20060609
  Receipt Date: 20060524
  Transmission Date: 20061013
  Serious: Yes (Life-Threatening)
  Sender: FDA-Public Use
  Company Number: 2006067329

PATIENT
  Age: 66 Year
  Sex: Male

DRUGS (11)
  1. SOLU-MEDROL [Suspect]
     Indication: NON-HODGKIN'S LYMPHOMA
     Dosage: 500 MG (1 IN 1 D), INTRAVENOUS
     Route: 042
     Dates: start: 20050907, end: 20050910
  2. ETOPOSIDE [Suspect]
     Indication: NON-HODGKIN'S LYMPHOMA
     Dosage: 40 MG, INTRAVENOUS
     Route: 042
     Dates: start: 20050907, end: 20050910
  3. CISPLATIN [Suspect]
     Indication: NON-HODGKIN'S LYMPHOMA
     Dosage: 25 MG (1 IN 1 D), INTRAVENOUS
     Route: 042
     Dates: start: 20050907, end: 20050910
  4. CYTARABINE [Suspect]
     Indication: NON-HODGKIN'S LYMPHOMA
     Dosage: 3.04 GRAM (1 IN 1 D), INTRAVENOUS
     Route: 042
     Dates: start: 20050911, end: 20050911
  5. ZOFRAN [Concomitant]
  6. BETAMETHASONE [Concomitant]
  7. GAMIMUNE N 5% [Concomitant]
  8. PIPERACILLIN SODIUM [Concomitant]
  9. MEROPEN (MEROPENEM) [Concomitant]
  10. MINOCYCLINE HCL [Concomitant]
  11. NEUPOGEN [Concomitant]

REACTIONS (2)
  - FEBRILE NEUTROPENIA [None]
  - SEPSIS [None]
